FAERS Safety Report 5705167-0 (Version None)
Quarter: 2008Q2

REPORT INFORMATION
  Report Type: 
  Country: None (occurrence: None)
  Receive Date: 20080410
  Receipt Date: 20080327
  Transmission Date: 20081010
  Serious: Yes (Hospitalization)
  Sender: FDA-Public Use
  Company Number: 2008-02093

PATIENT
  Age: 50 Year
  Sex: Female

DRUGS (1)
  1. ALLOPURINOL [Suspect]
     Indication: GOUT
     Dosage: 1 TABLET, DAILY (2 TABS TOTAL), ORAL
     Route: 048
     Dates: start: 20071117, end: 20071118

REACTIONS (5)
  - ALOPECIA [None]
  - BLINDNESS [None]
  - DIALYSIS [None]
  - STEVENS-JOHNSON SYNDROME [None]
  - TOXIC EPIDERMAL NECROLYSIS [None]
